FAERS Safety Report 9698039 (Version 2)
Quarter: 2013Q4

REPORT INFORMATION
  Report Type: Spontaneous
  Country: FR (occurrence: None)
  Receive Date: 20131112
  Receipt Date: 20131120
  Transmission Date: 20140711
  Serious: Yes (Hospitalization)
  Sender: FDA-Public Use
  Company Number: 2013038695

PATIENT
  Age: 77 Year
  Sex: Male

DRUGS (3)
  1. PRIVIGEN [Suspect]
     Indication: MUSCULAR WEAKNESS
     Dosage: 4 VIALS (100 MG/ML), 2 VIALS (100 MG/ML), 5 VIALS (100 MG/ML), 1 VIAL (100 MG/ML), 4 VIALS (100 MG/ML)
     Route: 042
     Dates: start: 20130803, end: 20130803
  2. NEXIUM (ESOMEPRAZOLE MAGNESIUM) [Suspect]
     Dosage: [2] STOPPED IN AUG-2013 DIE TP THE HEPATIC CYTOLYSIS
     Route: 048
     Dates: start: 20130716, end: 201308
  3. CORTANCYL (PREDNISONE) [Concomitant]

REACTIONS (1)
  - Hepatocellular injury [None]
